FAERS Safety Report 5299334-0 (Version None)
Quarter: 2007Q2

REPORT INFORMATION
  Report Type: 
  Country: None (occurrence: None)
  Receive Date: 20070411
  Receipt Date: 20070411
  Transmission Date: 20071010
  Serious: Yes (Hospitalization)
  Sender: FDA-Public Use
  Company Number: None

PATIENT
  Age: 66 Year
  Sex: Male
  Weight: 102.3 kg

DRUGS (8)
  1. WARFARIN SODIUM [Suspect]
     Indication: ATRIAL FIBRILLATION
     Dosage: 2.5 G DAILY PO
     Route: 048
  2. COREG [Concomitant]
  3. LASIX [Concomitant]
  4. LANOXIN [Concomitant]
  5. SYNTHROID [Concomitant]
  6. POTASSIUM ACETATE [Concomitant]
  7. MICARDIS [Concomitant]
  8. LITHIUM CARBONATE [Concomitant]

REACTIONS (3)
  - HAEMATURIA [None]
  - INTERNATIONAL NORMALISED RATIO DECREASED [None]
  - URINARY TRACT INFECTION [None]
